FAERS Safety Report 12628513 (Version 1)
Quarter: 2016Q3

REPORT INFORMATION
  Report Type: Spontaneous
  Country: US (occurrence: US)
  Receive Date: 20160808
  Receipt Date: 20160808
  Transmission Date: 20161109
  Serious: No
  Sender: FDA-Public Use
  Company Number: US-JAZZ-2016-US-004312

PATIENT
  Age: 65 Year
  Sex: Female

DRUGS (23)
  1. MAGNESIUM OXIDE. [Concomitant]
     Active Substance: MAGNESIUM OXIDE
  2. BENADRYL ALLERGY [Suspect]
     Active Substance: DIPHENHYDRAMINE HYDROCHLORIDE
     Indication: PRODUCT USED FOR UNKNOWN INDICATION
  3. CALTRATE [Concomitant]
     Active Substance: CALCIUM CARBONATE
  4. ZOFRAN [Concomitant]
     Active Substance: ONDANSETRON HYDROCHLORIDE
  5. ANTIVERT [Concomitant]
     Active Substance: MECLIZINE HYDROCHLORIDE
  6. METOLAZONE. [Concomitant]
     Active Substance: METOLAZONE
  7. XYREM [Suspect]
     Active Substance: SODIUM OXYBATE
     Indication: NARCOLEPSY
     Dosage: 2.25 G, BID
     Route: 048
     Dates: start: 20160302
  8. ALBUTEROL. [Concomitant]
     Active Substance: ALBUTEROL
  9. CIMETIDINE [Concomitant]
     Active Substance: CIMETIDINE
  10. CYANOCOBALAMIN. [Concomitant]
     Active Substance: CYANOCOBALAMIN
  11. LISINOPRIL + HIDROCLOROTIAZIDA [Concomitant]
     Active Substance: HYDROCHLOROTHIAZIDE\LISINOPRIL
  12. NICOTINE. [Concomitant]
     Active Substance: NICOTINE
  13. REQUIP [Concomitant]
     Active Substance: ROPINIROLE HYDROCHLORIDE
  14. ASPIRIN. [Concomitant]
     Active Substance: ASPIRIN
  15. KLOR-CON [Concomitant]
     Active Substance: POTASSIUM CHLORIDE
  16. PRAVASTATIN SODIUM. [Concomitant]
     Active Substance: PRAVASTATIN SODIUM
  17. SYMBICORT [Concomitant]
     Active Substance: BUDESONIDE\FORMOTEROL FUMARATE DIHYDRATE
  18. NORCO [Concomitant]
     Active Substance: ACETAMINOPHEN\HYDROCODONE BITARTRATE
  19. PLAVIX [Concomitant]
     Active Substance: CLOPIDOGREL BISULFATE
  20. LASIX [Concomitant]
     Active Substance: FUROSEMIDE
  21. PANTOPRAZOLE SODIUM. [Concomitant]
     Active Substance: PANTOPRAZOLE SODIUM
  22. PROAIR HFA [Concomitant]
     Active Substance: ALBUTEROL SULFATE
  23. FERROUS SULFATE. [Concomitant]
     Active Substance: FERROUS SULFATE

REACTIONS (5)
  - Pruritus [Unknown]
  - Dyspnoea [Not Recovered/Not Resolved]
  - Nausea [Unknown]
  - Incontinence [Not Recovered/Not Resolved]
  - Dizziness [Unknown]

NARRATIVE: CASE EVENT DATE: 201603
